FAERS Safety Report 4541936-0 (Version None)
Quarter: 2004Q4

REPORT INFORMATION
  Report Type: 
  Country: None (occurrence: None)
  Receive Date: 20041227
  Receipt Date: 20041209
  Transmission Date: 20050328
  Serious: Yes (Other)
  Sender: FDA-Public Use
  Company Number: 211229

PATIENT
  Age: 53 Year
  Sex: Female

DRUGS (1)
  1. MABTHERA (RITUXIMAB) [Suspect]
     Indication: VASCULITIS
     Dosage: 375 MG, 1/WEEK, INTRAVENOUS
     Route: 042

REACTIONS (4)
  - CRYOGLOBULINAEMIA [None]
  - ENCEPHALOPATHY [None]
  - HYPERAMMONAEMIA [None]
  - RHEUMATOID FACTOR POSITIVE [None]
